FAERS Safety Report 19318194 (Version 2)
Quarter: 2022Q2

REPORT INFORMATION
  Report Type: Report from Study
  Country: FR (occurrence: FR)
  Receive Date: 20210527
  Receipt Date: 20220420
  Transmission Date: 20220721
  Serious: Yes (Hospitalization)
  Sender: FDA-Public Use
  Company Number: FR-REGENERON PHARMACEUTICALS, INC.-2021-33331

PATIENT
  Age: 67 Year
  Sex: Male

DRUGS (13)
  1. CEMIPLIMAB [Suspect]
     Active Substance: CEMIPLIMAB
     Indication: Squamous cell carcinoma of skin
     Dosage: 350 MG, Q3W
     Route: 042
     Dates: start: 20210105, end: 20210216
  2. CEMIPLIMAB [Suspect]
     Active Substance: CEMIPLIMAB
     Dosage: 350 MG, Q3W
     Route: 042
     Dates: start: 20210420
  3. CALCIUM\CHOLECALCIFEROL [Concomitant]
     Active Substance: CALCIUM\CHOLECALCIFEROL
     Indication: Osteoporosis prophylaxis
     Dosage: 1 TABLET, BID
     Route: 048
  4. DIOSMIN [Concomitant]
     Active Substance: DIOSMIN
     Indication: Haemorrhoids
     Dosage: 600 MG, TID
     Route: 048
     Dates: start: 20210216, end: 20210221
  5. FERINJECT [Concomitant]
     Active Substance: FERRIC CARBOXYMALTOSE
     Indication: Anaemia
     Dosage: 1000 MG, QD
     Route: 042
     Dates: start: 20210216, end: 20210217
  6. FLAGYL                             /00012501/ [Concomitant]
     Indication: Squamous cell carcinoma of skin
     Dosage: 1 DF, QD
     Route: 061
     Dates: start: 20210127, end: 20210316
  7. FLUOXETINE [Concomitant]
     Active Substance: FLUOXETINE HYDROCHLORIDE
     Indication: Depression
     Dosage: 20 MG, QD
     Route: 048
  8. KARDEGIC [Concomitant]
     Active Substance: ASPIRIN DL-LYSINE
     Indication: Prophylaxis
     Dosage: 75 MG, QD
     Route: 048
     Dates: start: 20201215
  9. METFORMINE                         /00082701/ [Concomitant]
     Indication: Type 2 diabetes mellitus
     Dosage: 1 G, TID
     Route: 048
  10. MIANSERINE                         /00390601/ [Concomitant]
     Indication: Depression
     Dosage: 10 MG
     Route: 048
  11. REPAGLINIDE [Concomitant]
     Active Substance: REPAGLINIDE
     Indication: Type 2 diabetes mellitus
     Dosage: 0.5 MG, BID
     Route: 048
  12. RAMIPRIL [Concomitant]
     Active Substance: RAMIPRIL
     Indication: Prophylaxis
     Dosage: 10 MG
     Route: 048
     Dates: start: 20201215
  13. TIMOLOL [Concomitant]
     Active Substance: TIMOLOL
     Indication: Cataract
     Dosage: 2 GTT
     Route: 047

REACTIONS (1)
  - Troponin I increased [Recovered/Resolved]

NARRATIVE: CASE EVENT DATE: 20210310
